FAERS Safety Report 17848080 (Version 3)
Quarter: 2020Q2

REPORT INFORMATION
  Report Type: Spontaneous
  Country: US (occurrence: US)
  Receive Date: 20200601
  Receipt Date: 20200608
  Transmission Date: 20200714
  Serious: No
  Sender: FDA-Public Use
  Company Number: US-009507513-2003USA009223

PATIENT
  Sex: Female

DRUGS (2)
  1. NUVARING [Suspect]
     Active Substance: ETHINYL ESTRADIOL\ETONOGESTREL
     Dosage: UNK
     Route: 067
  2. ETONOGESTREL (+) ETHINYL ESTRADIOL [Suspect]
     Active Substance: ETHINYL ESTRADIOL\ETONOGESTREL
     Dosage: 1 RING; POTENCY 2.7 MG/11.7 MG
     Route: 067

REACTIONS (6)
  - Depressive symptom [Unknown]
  - Product substitution issue [Unknown]
  - Device expulsion [Unknown]
  - Vulvovaginal discomfort [Unknown]
  - Menorrhagia [Unknown]
  - Migraine [Unknown]
